FAERS Safety Report 8106291-8 (Version None)
Quarter: 2012Q1

REPORT INFORMATION
  Report Type: 
  Country: None (occurrence: None)
  Receive Date: 20120202
  Receipt Date: 20120125
  Transmission Date: 20120608
  Serious: Yes (Hospitalization)
  Sender: FDA-Public Use
  Company Number: CA-US-EMD SERONO, INC.-7003543

PATIENT
  Sex: Female

DRUGS (11)
  1. ELAVIL [Concomitant]
     Indication: PRODUCT USED FOR UNKNOWN INDICATION
  2. GABAPENTIN [Concomitant]
     Indication: PRODUCT USED FOR UNKNOWN INDICATION
  3. DOCUSATE SODIUM [Concomitant]
     Indication: PRODUCT USED FOR UNKNOWN INDICATION
  4. VITAMIN D + CALCIUM [Concomitant]
     Indication: PRODUCT USED FOR UNKNOWN INDICATION
  5. METRONIDAZOLE [Concomitant]
     Indication: PRODUCT USED FOR UNKNOWN INDICATION
  6. CF PHBCOPY [Concomitant]
     Indication: PRODUCT USED FOR UNKNOWN INDICATION
  7. REBIF [Suspect]
     Indication: RELAPSING-REMITTING MULTIPLE SCLEROSIS
     Route: 058
     Dates: start: 20090820
  8. TOPAMAX [Concomitant]
     Indication: PRODUCT USED FOR UNKNOWN INDICATION
  9. BACLOFEN [Concomitant]
     Indication: PRODUCT USED FOR UNKNOWN INDICATION
  10. LECTOPAM TAB [Concomitant]
     Indication: PRODUCT USED FOR UNKNOWN INDICATION
  11. WELLBUTRIN [Concomitant]
     Indication: PRODUCT USED FOR UNKNOWN INDICATION

REACTIONS (7)
  - PNEUMONIA [None]
  - MUSCULAR WEAKNESS [None]
  - INJECTION SITE PAIN [None]
  - PYELONEPHRITIS [None]
  - MULTIPLE SCLEROSIS RELAPSE [None]
  - MOTOR DYSFUNCTION [None]
  - INJECTION SITE HAEMATOMA [None]
